FAERS Safety Report 9827388 (Version 2)
Quarter: 2014Q1

REPORT INFORMATION
  Report Type: Spontaneous
  Country: AU (occurrence: AU)
  Receive Date: 20140117
  Receipt Date: 20140213
  Transmission Date: 20141002
  Serious: Yes (Hospitalization, Other)
  Sender: FDA-Public Use
  Company Number: AU-ELI_LILLY_AND_COMPANY-AU201401001337

PATIENT
  Age: 43 Year
  Sex: Female

DRUGS (5)
  1. ZYPREXA RELPREVV [Suspect]
     Indication: SCHIZOPHRENIA
     Dosage: 150 MG, UNKNOWN
     Route: 030
  2. ZYPREXA RELPREVV [Suspect]
     Dosage: 300 MG, EVERY THREE WEEKS
     Route: 030
     Dates: end: 20140102
  3. OLANZAPINE [Concomitant]
     Dosage: 5 MG, UNKNOWN
     Route: 048
  4. PACLITAXEL [Concomitant]
     Dosage: UNK UNK, EVERY 3 WEEKS
     Route: 042
  5. HERCEPTIN [Concomitant]
     Dosage: UNK UNK, EVERY THREE WEEKS
     Route: 042

REACTIONS (2)
  - Somnolence [Recovered/Resolved]
  - Sedation [Recovered/Resolved]
